FAERS Safety Report 5939844-3 (Version None)
Quarter: 2008Q4

REPORT INFORMATION
  Report Type: 
  Country: None (occurrence: None)
  Receive Date: 20081030
  Receipt Date: 20081030
  Transmission Date: 20090506
  Serious: Yes (Other)
  Sender: FDA-Public Use
  Company Number: None

PATIENT
  Age: 57 Year
  Sex: Female
  Weight: 63.9572 kg

DRUGS (1)
  1. WARFARIN SODIUM [Suspect]
     Indication: INTRAVENOUS CATHETER MANAGEMENT
     Dosage: 1MG TABLETS ONCE DAILY PO
     Route: 048
     Dates: start: 20080515, end: 20081013

REACTIONS (2)
  - PULSE ABSENT [None]
  - SKIN DISCOLOURATION [None]
